FAERS Safety Report 25935374 (Version 1)
Quarter: 2025Q4

REPORT INFORMATION
  Report Type: Spontaneous
  Country: US (occurrence: None)
  Receive Date: 20251017
  Receipt Date: 20251017
  Transmission Date: 20260118
  Serious: Yes (Death)
  Sender: FDA-CTU
  Company Number: None

PATIENT
  Sex: Female

DRUGS (3)
  1. GRANIX [Suspect]
     Active Substance: TBO-FILGRASTIM
     Dosage: OTHER STRENGTH : 300 MCG/0.5ML;?OTHER QUANTITY : 300 MCG/0.5ML;?FREQUENCY : DAILY;?
     Route: 058
  2. IBRANCE [Concomitant]
     Active Substance: PALBOCICLIB
  3. ZOLADEX [Concomitant]
     Active Substance: GOSERELIN ACETATE

REACTIONS (1)
  - Death [None]
